FAERS Safety Report 9167895 (Version 1)
Quarter: 2013Q1

REPORT INFORMATION
  Report Type: Spontaneous
  Country: BR (occurrence: BR)
  Receive Date: 20130318
  Receipt Date: 20130318
  Transmission Date: 20140127
  Serious: Yes (Death, Other)
  Sender: FDA-Public Use
  Company Number: PHHY2013BR025849

PATIENT
  Sex: Female
  Weight: 13 kg

DRUGS (3)
  1. TRILEPTAL [Suspect]
     Indication: CONVULSION
     Dosage: 2.5 ML, DAILY
     Route: 048
  2. GARDENAL [Concomitant]
     Indication: CONVULSION
     Dosage: 1 DF DAILY
     Route: 048
  3. VALPAKINE [Concomitant]
     Indication: CONVULSION

REACTIONS (2)
  - Pneumonia aspiration [Fatal]
  - Pneumonia [Unknown]
